FAERS Safety Report 8801606 (Version 2)
Quarter: 2012Q4

REPORT INFORMATION
  Report Type: 
  Country: AE (occurrence: AE)
  Receive Date: 20120921
  Receipt Date: 20121022
  Transmission Date: 20130627
  Serious: Yes (Hospitalization)
  Sender: FDA-Public Use
  Company Number: AE-ELI_LILLY_AND_COMPANY-AE201209005716

PATIENT
  Sex: Female

DRUGS (4)
  1. TERIPARATIDE [Suspect]
     Indication: OSTEOPOROSIS
     Dosage: UNK UNK, qd
     Route: 058
  2. ASPIRIN [Concomitant]
  3. CALCIUM [Concomitant]
     Indication: OSTEOPOROSIS
  4. INSULIN [Concomitant]
     Indication: DIABETES MELLITUS

REACTIONS (1)
  - Cholangitis [Unknown]
